FAERS Safety Report 4767378-0 (Version None)
Quarter: 2005Q3

REPORT INFORMATION
  Report Type: 
  Country: None (occurrence: None)
  Receive Date: 20050913
  Receipt Date: 20050627
  Transmission Date: 20060218
  Serious: Yes (Other)
  Sender: FDA-Public Use
  Company Number: US-ROCHE-409117

PATIENT
  Age: 42 Year
  Sex: Female

DRUGS (2)
  1. DEMADEX [Suspect]
     Route: 048
     Dates: start: 20041115, end: 20050515
  2. QUININE SULFATE [Suspect]
     Indication: DRUG USE FOR UNKNOWN INDICATION
     Route: 065

REACTIONS (2)
  - DEAFNESS BILATERAL [None]
  - OPTIC NERVE INJURY [None]
